FAERS Safety Report 26050965 (Version 1)
Quarter: 2025Q4

REPORT INFORMATION
  Report Type: Spontaneous
  Country: US (occurrence: US)
  Receive Date: 20251117
  Receipt Date: 20251117
  Transmission Date: 20260118
  Serious: No
  Sender: STRIDES
  Company Number: US-STRIDES ARCOLAB LIMITED-2025SP002882

PATIENT
  Age: 75 Year
  Sex: Male

DRUGS (3)
  1. TOPIRAMATE [Suspect]
     Active Substance: TOPIRAMATE
     Indication: Orthostatic tremor
     Dosage: UPTO 50MG  BID
     Route: 065
  2. ACETAZOLAMIDE [Concomitant]
     Active Substance: ACETAZOLAMIDE
     Indication: Orthostatic tremor
     Dosage: UNK
     Route: 065
  3. PRIMIDONE [Concomitant]
     Active Substance: PRIMIDONE
     Indication: Orthostatic tremor
     Dosage: UNK
     Route: 065

REACTIONS (3)
  - Decreased appetite [Unknown]
  - Weight decreased [Unknown]
  - Off label use [Unknown]
